FAERS Safety Report 25100322 (Version 1)
Quarter: 2025Q1

REPORT INFORMATION
  Report Type: Spontaneous
  Country: US (occurrence: None)
  Receive Date: 20250319
  Receipt Date: 20250319
  Transmission Date: 20250409
  Serious: Yes (Other)
  Sender: FDA-CTU
  Company Number: None

PATIENT
  Age: 55 Year
  Sex: Female
  Weight: 110.25 kg

DRUGS (1)
  1. SEMAGLUTIDE [Suspect]
     Active Substance: SEMAGLUTIDE
     Dates: start: 20240715, end: 20250215

REACTIONS (5)
  - Abdominal pain [None]
  - Nausea [None]
  - Diarrhoea [None]
  - Hyperhidrosis [None]
  - Dizziness [None]

NARRATIVE: CASE EVENT DATE: 20250220
